FAERS Safety Report 25109895 (Version 1)
Quarter: 2025Q1

REPORT INFORMATION
  Report Type: Report from Study
  Country: US (occurrence: US)
  Receive Date: 20250324
  Receipt Date: 20250324
  Transmission Date: 20250409
  Serious: Yes (Hospitalization, Other)
  Sender: ABBVIE
  Company Number: US-ABBVIE-6184097

PATIENT
  Age: 70 Year
  Sex: Female

DRUGS (3)
  1. SKYRIZI [Suspect]
     Active Substance: RISANKIZUMAB-RZAA
     Indication: Psoriasis
     Route: 058
     Dates: start: 20210506
  2. TRIKAFTA [Concomitant]
     Active Substance: ELEXACAFTOR\IVACAFTOR\TEZACAFTOR
     Indication: Product used for unknown indication
  3. IBUPROFEN [Concomitant]
     Active Substance: IBUPROFEN
     Indication: Product used for unknown indication
     Dates: start: 202411

REACTIONS (7)
  - Basal cell carcinoma [Not Recovered/Not Resolved]
  - Pulmonary fibrosis [Not Recovered/Not Resolved]
  - Gastric perforation [Recovered/Resolved]
  - White blood cell count decreased [Not Recovered/Not Resolved]
  - Pneumonia aspiration [Unknown]
  - Malaise [Unknown]
  - Bronchiectasis [Unknown]

NARRATIVE: CASE EVENT DATE: 20241101
